FAERS Safety Report 6340374 (Version 2)
Quarter: 2020Q3

REPORT INFORMATION
  Report Type: Report from Study
  Country: US (occurrence: US)
  Receive Date: 20070622
  Receipt Date: 20081003
  Transmission Date: 20201105
  Serious: Yes (Death)
  Sender: FDA-Public Use
  Company Number: US-ROCHE-497962

PATIENT
  Age: 80 Year
  Sex: Female
  Weight: 52.6 kg

DRUGS (3)
  1. FOSAMAX [Concomitant]
     Active Substance: ALENDRONATE SODIUM
  2. IBANDRONIC ACID. [Suspect]
     Active Substance: IBANDRONIC ACID
     Indication: OSTEOPOROSIS POSTMENOPAUSAL
     Route: 065
     Dates: start: 20060321, end: 20060504
  3. FOSAMAX [Concomitant]
     Active Substance: ALENDRONATE SODIUM

REACTIONS (1)
  - Death [Fatal]

NARRATIVE: CASE EVENT DATE: 20070301
